FAERS Safety Report 13780147 (Version 2)
Quarter: 2017Q3

REPORT INFORMATION
  Report Type: Spontaneous
  Country: JP (occurrence: JP)
  Receive Date: 20170724
  Receipt Date: 20170828
  Transmission Date: 20171127
  Serious: Yes (Other)
  Sender: FDA-Public Use
  Company Number: JP-TEVA-790838ACC

PATIENT
  Age: 71 Year
  Sex: Female

DRUGS (6)
  1. BENDAMUSTINE HYDROCHLORIDE. [Suspect]
     Active Substance: BENDAMUSTINE HYDROCHLORIDE
     Dosage: (CYCLE 3)
     Route: 042
     Dates: start: 20170615, end: 20170616
  2. RITUXIMAB. [Concomitant]
     Active Substance: RITUXIMAB
     Indication: B-CELL LYMPHOMA
     Route: 041
     Dates: start: 20170421
  3. RITUXIMAB. [Concomitant]
     Active Substance: RITUXIMAB
     Route: 041
     Dates: start: 20170519
  4. BENDAMUSTINE HYDROCHLORIDE. [Suspect]
     Active Substance: BENDAMUSTINE HYDROCHLORIDE
     Dosage: (CYCLE 2)
     Route: 042
     Dates: start: 20170518, end: 20170519
  5. BENDAMUSTINE HYDROCHLORIDE. [Suspect]
     Active Substance: BENDAMUSTINE HYDROCHLORIDE
     Indication: B-CELL LYMPHOMA
     Dosage: (CYCLE 1)
     Route: 042
     Dates: start: 20170420, end: 20170421
  6. RITUXIMAB. [Concomitant]
     Active Substance: RITUXIMAB
     Route: 041
     Dates: start: 20170616

REACTIONS (2)
  - Aplasia pure red cell [Recovering/Resolving]
  - Prescribed underdose [Unknown]

NARRATIVE: CASE EVENT DATE: 20170713
